FAERS Safety Report 6719350-9 (Version None)
Quarter: 2010Q2

REPORT INFORMATION
  Report Type: 
  Country: None (occurrence: None)
  Receive Date: 20100507
  Receipt Date: 20100426
  Transmission Date: 20101027
  Serious: Yes (Other)
  Sender: FDA-Public Use
  Company Number: 011205

PATIENT
  Sex: Female

DRUGS (6)
  1. XYREM [Suspect]
     Indication: CATAPLEXY
     Dosage: 2.25G, BID, NIGHTLY ORAL; 7G, 4.5G/2.5G NIGHTLY ORAL, 4.5G BID, NIGHTLY ORAL
     Route: 048
     Dates: start: 20090420, end: 20090701
  2. XYREM [Suspect]
     Indication: NARCOLEPSY
     Dosage: 2.25G, BID, NIGHTLY ORAL; 7G, 4.5G/2.5G NIGHTLY ORAL, 4.5G BID, NIGHTLY ORAL
     Route: 048
     Dates: start: 20090420, end: 20090701
  3. XYREM [Suspect]
     Indication: CATAPLEXY
     Dosage: 2.25G, BID, NIGHTLY ORAL; 7G, 4.5G/2.5G NIGHTLY ORAL, 4.5G BID, NIGHTLY ORAL
     Route: 048
     Dates: start: 20091115
  4. XYREM [Suspect]
     Indication: NARCOLEPSY
     Dosage: 2.25G, BID, NIGHTLY ORAL; 7G, 4.5G/2.5G NIGHTLY ORAL, 4.5G BID, NIGHTLY ORAL
     Route: 048
     Dates: start: 20091115
  5. KEPPRA [Suspect]
     Dates: start: 20100401
  6. PROPRANOLOL [Suspect]
     Dates: start: 20100401

REACTIONS (13)
  - CONVULSION [None]
  - DISORIENTATION [None]
  - ENURESIS [None]
  - FEELING ABNORMAL [None]
  - GAIT DISTURBANCE [None]
  - HEADACHE [None]
  - IMPAIRED WORK ABILITY [None]
  - INITIAL INSOMNIA [None]
  - JOB DISSATISFACTION [None]
  - NASAL CONGESTION [None]
  - NAUSEA [None]
  - RHINORRHOEA [None]
  - TOOTHACHE [None]
